FAERS Safety Report 9179491 (Version 1)
Quarter: 2013Q1

REPORT INFORMATION
  Report Type: Report from Study
  Country: DE (occurrence: DE)
  Receive Date: 20130321
  Receipt Date: 20130321
  Transmission Date: 20140127
  Serious: Yes (Hospitalization)
  Sender: FDA-Public Use
  Company Number: DE-ROCHE-1204102

PATIENT
  Age: 49 Year
  Sex: Male

DRUGS (4)
  1. RIBAVIRIN [Suspect]
     Indication: CHRONIC HEPATITIS C
     Route: 048
  2. BOCEPREVIR [Suspect]
     Indication: CHRONIC HEPATITIS C
     Route: 048
  3. PEG-INTERFERON ALFA 2A [Suspect]
     Indication: CHRONIC HEPATITIS C
     Route: 058
  4. PEG-INTERFERON ALFA 2A [Suspect]
     Route: 058

REACTIONS (1)
  - Gastritis [Recovering/Resolving]
